FAERS Safety Report 6027165-2 (Version None)
Quarter: 2009Q1

REPORT INFORMATION
  Report Type: 
  Country: None (occurrence: None)
  Receive Date: 20090105
  Receipt Date: 20081222
  Transmission Date: 20090719
  Serious: Yes (Other)
  Sender: FDA-Public Use
  Company Number: JP-PFIZER INC-2008154855

PATIENT

DRUGS (1)
  1. HYSRON [Suspect]
     Route: 048

REACTIONS (2)
  - PLACENTA ACCRETA [None]
  - PLACENTAL DISORDER [None]
